FAERS Safety Report 7207501-1 (Version None)
Quarter: 2010Q4

REPORT INFORMATION
  Report Type: 
  Country: None (occurrence: None)
  Receive Date: 20101221
  Receipt Date: 20101213
  Transmission Date: 20110411
  Serious: Yes (Other)
  Sender: FDA-Public Use
  Company Number: 2010SP064810

PATIENT
  Sex: Female

DRUGS (1)
  1. DIPROPHOS (BETAMETHASONE SODIUM PHOSPHATE/DIPROPIONATE /00582101/) [Suspect]
     Indication: SPINAL DISORDER
     Dates: start: 20100630, end: 20100630

REACTIONS (4)
  - ABDOMINAL DISTENSION [None]
  - ABDOMINAL PAIN UPPER [None]
  - BLOOD IRON DECREASED [None]
  - MENORRHAGIA [None]
